FAERS Safety Report 6775290-0 (Version None)
Quarter: 2010Q2

REPORT INFORMATION
  Report Type: 
  Country: None (occurrence: None)
  Receive Date: 20100615
  Receipt Date: 20100615
  Transmission Date: 20101027
  Serious: Yes (Hospitalization)
  Sender: FDA-Public Use
  Company Number: None

PATIENT
  Sex: Female
  Weight: 23.8138 kg

DRUGS (2)
  1. RAPAMUNE [Suspect]
     Indication: NEUROFIBROMATOSIS
     Dosage: 1.1 ML BID PO
     Route: 048
     Dates: start: 20080616, end: 20100507
  2. AEOROLSOLIZED PENTAMIDINE [Concomitant]

REACTIONS (1)
  - HOSPITALISATION [None]
